FAERS Safety Report 4559368-8 (Version None)
Quarter: 2005Q1

REPORT INFORMATION
  Report Type: 
  Country: None (occurrence: None)
  Receive Date: 20050124
  Receipt Date: 20050114
  Transmission Date: 20050727
  Serious: Yes (Hospitalization, Other)
  Sender: FDA-Public Use
  Company Number: US-GLAXOSMITHKLINE-A0540620A

PATIENT
  Age: 85 Year
  Sex: Female
  Weight: 68 kg

DRUGS (3)
  1. ECOTRIN ADULT LOW STRENGTH TABLETS [Suspect]
     Route: 048
     Dates: start: 20040101
  2. DIURETIC [Concomitant]
     Route: 048
  3. BLOOD PRESSURE MEDICATION [Concomitant]
     Route: 048

REACTIONS (5)
  - CHEST PAIN [None]
  - GASTRIC POLYPS [None]
  - GOUT [None]
  - INSOMNIA [None]
  - MYALGIA [None]
